FAERS Safety Report 10686066 (Version 2)
Quarter: 2015Q1

REPORT INFORMATION
  Report Type: Spontaneous
  Country: US (occurrence: US)
  Receive Date: 20141231
  Receipt Date: 20150127
  Transmission Date: 20150720
  Serious: Yes (Hospitalization)
  Sender: FDA-Public Use
  Company Number: US-PFIZER INC-2014362062

PATIENT
  Age: 56 Year
  Sex: Female
  Weight: 56 kg

DRUGS (2)
  1. CHANTIX [Suspect]
     Active Substance: VARENICLINE TARTRATE
     Indication: SMOKING CESSATION THERAPY
     Dosage: 1 MG, 2X/DAY (NORMAL DOSE IN MORNING AND NIGHT)
     Route: 048
     Dates: start: 20140811, end: 20141031
  2. KLONOPIN [Suspect]
     Active Substance: CLONAZEPAM
     Indication: DEPRESSION
     Dosage: UNK

REACTIONS (4)
  - Depression [Unknown]
  - Seizure [Recovering/Resolving]
  - Amnesia [Unknown]
  - Confusional state [Unknown]

NARRATIVE: CASE EVENT DATE: 2014
